FAERS Safety Report 23558367 (Version 1)
Quarter: 2024Q1

REPORT INFORMATION
  Report Type: Spontaneous
  Country: US (occurrence: None)
  Receive Date: 20240223
  Receipt Date: 20240223
  Transmission Date: 20240410
  Serious: Yes (Other)
  Sender: FDA-Public Use
  Company Number: US-ROCHE-3510520

PATIENT
  Age: 86 Year
  Sex: Male
  Weight: 65.83 kg

DRUGS (4)
  1. ACTEMRA [Suspect]
     Active Substance: TOCILIZUMAB
     Indication: Angioedema
     Route: 058
  2. ACTEMRA [Suspect]
     Active Substance: TOCILIZUMAB
  3. ELIQUIS [Concomitant]
     Active Substance: APIXABAN
     Route: 048
     Dates: start: 202401
  4. ESCITALOPRAM [Concomitant]
     Active Substance: ESCITALOPRAM OXALATE
     Indication: Blood cholesterol
     Route: 048
     Dates: start: 202310

REACTIONS (6)
  - Product storage error [Unknown]
  - Product complaint [Unknown]
  - Off label use [Unknown]
  - Device defective [Unknown]
  - Fall [Unknown]
  - Pain [Unknown]
